FAERS Safety Report 8066029-X (Version None)
Quarter: 2012Q1

REPORT INFORMATION
  Report Type: 
  Country: None (occurrence: None)
  Receive Date: 20120124
  Receipt Date: 20120113
  Transmission Date: 20120608
  Serious: Yes (Other)
  Sender: FDA-Public Use
  Company Number: US-NOVOPROD-343046

PATIENT
  Age: 53 Year
  Sex: Female
  Weight: 145.13 kg

DRUGS (1)
  1. VICTOZA [Suspect]
     Indication: TYPE 2 DIABETES MELLITUS
     Dosage: 1.2 MG, QD
     Route: 058
     Dates: start: 20110616, end: 20110701

REACTIONS (3)
  - PHARYNGEAL OEDEMA [None]
  - ANAPHYLACTIC REACTION [None]
  - DYSPNOEA [None]
